FAERS Safety Report 9914520 (Version 1)
Quarter: 2014Q1

REPORT INFORMATION
  Report Type: Spontaneous
  Country: US (occurrence: US)
  Receive Date: 20140220
  Receipt Date: 20140220
  Transmission Date: 20141002
  Serious: No
  Sender: FDA-Public Use
  Company Number: US-TARO-2013P1002733

PATIENT
  Age: 30 Year
  Sex: Female

DRUGS (4)
  1. FLUOCINONIDE [Suspect]
     Route: 061
     Dates: start: 20130209, end: 20130223
  2. FLUOCINONIDE [Suspect]
     Route: 045
     Dates: start: 20130223, end: 20130223
  3. SALINE NASAL SPRAY [Concomitant]
  4. SUDAFED [Concomitant]

REACTIONS (4)
  - Incorrect route of drug administration [Recovered/Resolved]
  - Wrong drug administered [Recovered/Resolved]
  - Epistaxis [Recovering/Resolving]
  - Chemical injury [Recovering/Resolving]
